FAERS Safety Report 16307889 (Version 4)
Quarter: 2023Q4

REPORT INFORMATION
  Report Type: Spontaneous
  Country: US (occurrence: None)
  Receive Date: 20190514
  Receipt Date: 20231023
  Transmission Date: 20240110
  Serious: Yes (Death, Hospitalization, Other)
  Sender: FDA-Public Use
  Company Number: 2019SE65985

PATIENT
  Age: 59 Year
  Sex: Male
  Weight: 68.9 kg

DRUGS (43)
  1. NEXIUM [Suspect]
     Active Substance: ESOMEPRAZOLE MAGNESIUM
     Indication: Gastrooesophageal reflux disease
     Route: 048
     Dates: start: 2004, end: 2014
  2. PRILOSEC [Suspect]
     Active Substance: OMEPRAZOLE MAGNESIUM
     Indication: Gastrooesophageal reflux disease
     Route: 048
  3. PRILOSEC [Suspect]
     Active Substance: OMEPRAZOLE MAGNESIUM
     Indication: Gastrooesophageal reflux disease
     Dosage: GENERIC
     Dates: start: 2014, end: 2016
  4. PRILOSEC [Suspect]
     Active Substance: OMEPRAZOLE MAGNESIUM
     Indication: Gastrooesophageal reflux disease
     Dosage: GENERIC; ON EMPTY STOMACH PRIOR TO A MEAL
     Dates: start: 20160223, end: 20170223
  5. PRILOSEC [Suspect]
     Active Substance: OMEPRAZOLE MAGNESIUM
     Indication: Gastrooesophageal reflux disease
     Dates: start: 2009, end: 2016
  6. NEXIUM 24HR [Suspect]
     Active Substance: ESOMEPRAZOLE MAGNESIUM
     Indication: Gastrooesophageal reflux disease
     Route: 048
     Dates: start: 2014, end: 2016
  7. NEXIUM 24HR [Suspect]
     Active Substance: ESOMEPRAZOLE MAGNESIUM
     Indication: Gastrooesophageal reflux disease
     Route: 048
     Dates: start: 2008, end: 2016
  8. PRILOSEC OTC [Suspect]
     Active Substance: OMEPRAZOLE MAGNESIUM
     Indication: Gastrooesophageal reflux disease
     Dosage: 20 MG 7-8 TIMES DAILY
     Route: 048
     Dates: start: 2009, end: 2016
  9. PRILOSEC OTC [Suspect]
     Active Substance: OMEPRAZOLE MAGNESIUM
     Indication: Gastrooesophageal reflux disease
     Route: 048
     Dates: start: 2008, end: 2016
  10. FUROSEMIDE [Concomitant]
     Active Substance: FUROSEMIDE
     Indication: Diuretic therapy
     Dates: start: 20170127
  11. HYDRALAZINE [Concomitant]
     Active Substance: HYDRALAZINE HYDROCHLORIDE
     Indication: Hypertension
     Dates: start: 20170127
  12. LOSARTAN [Concomitant]
     Active Substance: LOSARTAN
     Indication: Hypertension
     Dates: start: 20170127
  13. TRAMADOL [Concomitant]
     Active Substance: TRAMADOL\TRAMADOL HYDROCHLORIDE
     Indication: Analgesic therapy
     Dates: start: 20160220
  14. LISINOPRIL [Concomitant]
     Active Substance: LISINOPRIL
     Indication: Hypertension
     Dates: start: 20150616, end: 20151124
  15. AMOXICILLIN [Concomitant]
     Active Substance: AMOXICILLIN
     Indication: Antibiotic therapy
     Dates: start: 20110803
  16. AMOXICILLIN [Concomitant]
     Active Substance: AMOXICILLIN
     Indication: Antibiotic therapy
     Dates: start: 20111208
  17. AMOXICILLIN [Concomitant]
     Active Substance: AMOXICILLIN
     Indication: Antibiotic therapy
     Dates: start: 20150108
  18. CARVEDILOL [Concomitant]
     Active Substance: CARVEDILOL
     Dates: start: 20160426
  19. NOVOLIN NOS [Concomitant]
     Active Substance: INSULIN HUMAN
     Dates: start: 20160426
  20. GEMFIBROZIL [Concomitant]
     Active Substance: GEMFIBROZIL
     Dates: start: 20100623
  21. GLIPIZIDE [Concomitant]
     Active Substance: GLIPIZIDE
     Dates: start: 20100623
  22. ACETAMINOPHEN\HYDROCODONE [Concomitant]
     Active Substance: ACETAMINOPHEN\HYDROCODONE
     Dates: start: 20100623
  23. IBUPROFEN [Concomitant]
     Active Substance: IBUPROFEN
     Dates: start: 20080624, end: 20150210
  24. LIDOCAINE [Concomitant]
     Active Substance: LIDOCAINE
     Dates: start: 20100623
  25. ACETAMINOPHEN\OXYCODONE HYDROCHLORIDE [Concomitant]
     Active Substance: ACETAMINOPHEN\OXYCODONE HYDROCHLORIDE
     Dates: start: 20100623
  26. ALBUTEROL [Concomitant]
     Active Substance: ALBUTEROL
     Dates: start: 20100623
  27. ERGOCALCIFEROL [Concomitant]
     Active Substance: ERGOCALCIFEROL
     Dates: start: 20100623
  28. METHOCARBAMOL [Concomitant]
     Active Substance: METHOCARBAMOL
     Dates: start: 20100623
  29. OXYMETAZOLINE [Concomitant]
     Active Substance: OXYMETAZOLINE
     Dates: start: 20100623
  30. FERROUS SULFATE [Concomitant]
     Active Substance: FERROUS SULFATE
     Dates: start: 20170503
  31. ACETAMINOPHEN [Concomitant]
     Active Substance: ACETAMINOPHEN
     Dates: start: 20170503
  32. TERAZOSIN [Concomitant]
     Active Substance: TERAZOSIN HYDROCHLORIDE
     Dates: start: 20170323
  33. CAPTOPRIL [Concomitant]
     Active Substance: CAPTOPRIL
  34. VITAMINS [Concomitant]
     Active Substance: VITAMINS
  35. BISACODYL [Concomitant]
     Active Substance: BISACODYL
     Dates: start: 20160324
  36. TAMSULOSIN [Concomitant]
     Active Substance: TAMSULOSIN
  37. PROMETHAZINE [Concomitant]
     Active Substance: PROMETHAZINE HYDROCHLORIDE
  38. VIAGRA [Concomitant]
     Active Substance: SILDENAFIL CITRATE
  39. AVANDAMET [Concomitant]
     Active Substance: METFORMIN HYDROCHLORIDE\ROSIGLITAZONE MALEATE
  40. TRIAMNICINOLONE [Concomitant]
  41. LEVITRA [Concomitant]
     Active Substance: VARDENAFIL HYDROCHLORIDE
  42. AZITHROMYCIN [Concomitant]
     Active Substance: AZITHROMYCIN
     Dates: start: 20170127
  43. NOVOLOG [Concomitant]
     Active Substance: INSULIN ASPART
     Dates: start: 20170127

REACTIONS (8)
  - Pneumonia [Fatal]
  - Hypertension [Fatal]
  - End stage renal disease [Fatal]
  - Chronic kidney disease [Unknown]
  - Acute kidney injury [Unknown]
  - Renal failure [Unknown]
  - Major depression [Unknown]
  - Anxiety [Unknown]

NARRATIVE: CASE EVENT DATE: 20160101
